FAERS Safety Report 24421115 (Version 3)
Quarter: 2024Q4

REPORT INFORMATION
  Report Type: Spontaneous
  Country: FR (occurrence: FR)
  Receive Date: 20241010
  Receipt Date: 20241128
  Transmission Date: 20250115
  Serious: Yes (Hospitalization, Other)
  Sender: AUROBINDO
  Company Number: FR-SUN PHARMACEUTICAL INDUSTRIES LTD-2024R1-469374

PATIENT
  Age: 11 Year
  Sex: Male
  Weight: 31.6 kg

DRUGS (7)
  1. IRINOTECAN [Suspect]
     Active Substance: IRINOTECAN
     Indication: Ewing^s sarcoma
     Dosage: 58 MILLIGRAM
     Route: 042
     Dates: start: 20240205, end: 20240525
  2. IRINOTECAN [Suspect]
     Active Substance: IRINOTECAN
     Dosage: 58 MILLIGRAM
     Route: 042
     Dates: start: 20240701
  3. IRINOTECAN [Suspect]
     Active Substance: IRINOTECAN
     Dosage: UNK MILLIGRAM
     Route: 042
     Dates: start: 20240816
  4. TEMOZOLOMIDE [Suspect]
     Active Substance: TEMOZOLOMIDE
     Indication: Ewing^s sarcoma
     Dosage: 120 MILLIGRAM
     Route: 048
     Dates: start: 20240205, end: 20240525
  5. TEMOZOLOMIDE [Suspect]
     Active Substance: TEMOZOLOMIDE
     Dosage: 120 MILLIGRAM
     Route: 048
     Dates: start: 20240701
  6. TEMOZOLOMIDE [Suspect]
     Active Substance: TEMOZOLOMIDE
     Dosage: UNK MILLIGRAM
     Route: 048
     Dates: start: 20240816
  7. PRIMPERAN [Concomitant]
     Active Substance: METOCLOPRAMIDE HYDROCHLORIDE
     Indication: Vomiting
     Dosage: UNK
     Route: 065
     Dates: start: 20240208

REACTIONS (2)
  - Pyrexia [Recovered/Resolved]
  - Pneumonitis [Recovered/Resolved]

NARRATIVE: CASE EVENT DATE: 20240614
